FAERS Safety Report 6389631-X (Version None)
Quarter: 2009Q4

REPORT INFORMATION
  Report Type: 
  Country: None (occurrence: None)
  Receive Date: 20091006
  Receipt Date: 20090928
  Transmission Date: 20100525
  Serious: Yes (Hospitalization)
  Sender: FDA-Public Use
  Company Number: PHHY2009FR33816

PATIENT
  Age: 67 Year
  Sex: Female

DRUGS (3)
  1. TEGRETOL [Suspect]
     Indication: EPILEPSY
     Dosage: UNK
     Dates: start: 19920101
  2. SECTRAL [Interacting]
     Indication: HYPERTENSION
     Dosage: 200 MG
     Route: 048
     Dates: start: 20090411
  3. LAMICTAL [Concomitant]
     Indication: EPILEPSY

REACTIONS (4)
  - BLOOD PRESSURE SYSTOLIC DECREASED [None]
  - DISTURBANCE IN ATTENTION [None]
  - DRUG INTERACTION [None]
  - NODAL ARRHYTHMIA [None]
